FAERS Safety Report 24853245 (Version 3)
Quarter: 2025Q3

REPORT INFORMATION
  Report Type: Spontaneous
  Country: EU (occurrence: EU)
  Receive Date: 20250117
  Receipt Date: 20250809
  Transmission Date: 20251020
  Serious: Yes (Death, Other)
  Sender: ALEXION PHARMACEUTICALS
  Company Number: EU-002147023-NVSC2024DE002177

PATIENT
  Sex: Female
  Weight: 81 kg

DRUGS (9)
  1. FASLODEX [Suspect]
     Active Substance: FULVESTRANT
     Indication: Hormone receptor positive HER2 negative breast cancer
     Dosage: 500 MG, Q4W (DAILY DOSE)
     Dates: start: 20190909, end: 20200203
  2. FASLODEX [Suspect]
     Active Substance: FULVESTRANT
     Dosage: 500 MG, Q4W (DAILY DOSE)
     Dates: start: 20200224, end: 20201007
  3. RIBOCICLIB [Suspect]
     Active Substance: RIBOCICLIB
     Indication: Hormone receptor positive HER2 negative breast cancer
     Dates: start: 20190910, end: 20200203
  4. RIBOCICLIB [Suspect]
     Active Substance: RIBOCICLIB
     Dates: start: 20200204, end: 20201103
  5. AFINITOR [Suspect]
     Active Substance: EVEROLIMUS
     Indication: Hormone receptor positive HER2 negative breast cancer
     Dosage: 5 MG, QD (DAILY DOSE)
     Dates: start: 20201103, end: 20201209
  6. AFINITOR [Suspect]
     Active Substance: EVEROLIMUS
     Dosage: 5 MG, QD (DAILY DOSE)
     Dates: start: 20201209, end: 20210323
  7. AFINITOR [Suspect]
     Active Substance: EVEROLIMUS
     Dosage: 10 MG, QD (DAILY DOSE)
     Dates: start: 20210324, end: 20210609
  8. AFINITOR [Suspect]
     Active Substance: EVEROLIMUS
     Dosage: 10 MG, QD (DAILY DOSE)
     Dates: start: 20210610, end: 20210825
  9. ABEMACICLIB [Concomitant]
     Active Substance: ABEMACICLIB
     Indication: HER2 positive breast cancer
     Dosage: 300 MG, QD (DAILY DOSE)
     Dates: start: 20210907, end: 20211115

REACTIONS (2)
  - Hormone receptor positive HER2 negative breast cancer [Fatal]
  - Malignant neoplasm progression [Fatal]

NARRATIVE: CASE EVENT DATE: 20230102
